FAERS Safety Report 10469103 (Version 2)
Quarter: 2014Q3

REPORT INFORMATION
  Report Type: Spontaneous
  Country: FR (occurrence: FR)
  Receive Date: 20140923
  Receipt Date: 20140923
  Transmission Date: 20150326
  Serious: Yes (Other)
  Sender: FDA-Public Use
  Company Number: FR-DRREDDYS-GER/FRA/14/0042975

PATIENT
  Age: 90 Year
  Sex: Female

DRUGS (7)
  1. CLOPIDOGREL [Suspect]
     Active Substance: CLOPIDOGREL BISULFATE
     Indication: CARDIAC REHABILITATION THERAPY
  2. ASPIRINE [Suspect]
     Active Substance: ASPIRIN
     Indication: CARDIAC REHABILITATION THERAPY
  3. FUROSEMIDE. [Suspect]
     Active Substance: FUROSEMIDE
     Indication: CARDIAC REHABILITATION THERAPY
  4. RAMIPRIL. [Suspect]
     Active Substance: RAMIPRIL
     Indication: CARDIAC REHABILITATION THERAPY
  5. BISOPROLOL FUMARATE. [Suspect]
     Active Substance: BISOPROLOL FUMARATE
     Indication: CARDIAC REHABILITATION THERAPY
  6. EPLERENONE. [Suspect]
     Active Substance: EPLERENONE
     Indication: CARDIAC REHABILITATION THERAPY
  7. ROSUVASTATIN [Suspect]
     Active Substance: ROSUVASTATIN
     Indication: CARDIAC REHABILITATION THERAPY

REACTIONS (2)
  - Dyspnoea at rest [Recovering/Resolving]
  - Treatment failure [Unknown]
